FAERS Safety Report 7986821-7 (Version None)
Quarter: 2011Q4

REPORT INFORMATION
  Report Type: 
  Country: None (occurrence: None)
  Receive Date: 20111216
  Receipt Date: 20110830
  Transmission Date: 20120403
  Serious: No
  Sender: FDA-Public Use
  Company Number: US-BRISTOL-MYERS SQUIBB COMPANY-16019721

PATIENT
  Age: 59 Year
  Sex: Female

DRUGS (4)
  1. ABILIFY [Suspect]
     Indication: DEPRESSION
     Dosage: INITIALLY 2MG THEN INCREASED TO 4MG + THEN 6MG.
  2. VALTREX [Concomitant]
  3. NEURONTIN [Concomitant]
  4. ZOLOFT [Suspect]
     Indication: DEPRESSION

REACTIONS (1)
  - TARDIVE DYSKINESIA [None]
